FAERS Safety Report 7998984-8 (Version None)
Quarter: 2011Q4

REPORT INFORMATION
  Report Type: 
  Country: None (occurrence: None)
  Receive Date: 20111221
  Receipt Date: 20111213
  Transmission Date: 20120403
  Serious: Yes (Hospitalization)
  Sender: FDA-Public Use
  Company Number: FR-ABBOTT-11P-056-0883473-00

PATIENT
  Sex: Male

DRUGS (8)
  1. KALETRA [Suspect]
     Indication: PRODUCT USED FOR UNKNOWN INDICATION
     Dates: start: 20050219, end: 20110107
  2. EPIVIR [Suspect]
     Indication: PRODUCT USED FOR UNKNOWN INDICATION
     Dates: start: 20050101, end: 20071113
  3. NORVIR [Suspect]
     Indication: HIV INFECTION
     Route: 048
     Dates: start: 20050101, end: 20050219
  4. ZIAGEN [Suspect]
     Indication: PRODUCT USED FOR UNKNOWN INDICATION
     Dates: start: 20050101, end: 20050219
  5. DARUNAVIR [Suspect]
     Indication: HIV INFECTION
     Route: 048
     Dates: start: 20110107, end: 20110119
  6. TRUVADA [Concomitant]
     Indication: HIV INFECTION
     Route: 048
     Dates: start: 20110113, end: 20110119
  7. NORVIR [Suspect]
     Dates: start: 20110107, end: 20110119
  8. TELZIR [Suspect]
     Indication: PRODUCT USED FOR UNKNOWN INDICATION
     Dates: start: 20050101, end: 20050204

REACTIONS (22)
  - RASH GENERALISED [None]
  - ACUTE GENERALISED EXANTHEMATOUS PUSTULOSIS [None]
  - ORAL MUCOSA EROSION [None]
  - ASTHENIA [None]
  - PERICARDITIS [None]
  - STOMATITIS [None]
  - RENAL FAILURE ACUTE [None]
  - CYTOLYTIC HEPATITIS [None]
  - EOSINOPHILIA [None]
  - RASH MORBILLIFORM [None]
  - ODYNOPHAGIA [None]
  - RASH PRURITIC [None]
  - RASH [None]
  - RASH PUSTULAR [None]
  - APHASIA [None]
  - LEUKOCYTOSIS [None]
  - THROMBOCYTOPENIA [None]
  - RASH MACULAR [None]
  - PYREXIA [None]
  - LYMPHADENOPATHY [None]
  - INFLAMMATION [None]
  - SEBORRHOEIC DERMATITIS [None]
